FAERS Safety Report 19409527 (Version 2)
Quarter: 2024Q2

REPORT INFORMATION
  Report Type: Spontaneous
  Country: US (occurrence: US)
  Receive Date: 20210614
  Receipt Date: 20240412
  Transmission Date: 20240716
  Serious: Yes (Other)
  Sender: FDA-Public Use
  Company Number: US-PURDUE-USA-2020-0218838

PATIENT
  Sex: Female

DRUGS (3)
  1. OXYCONTIN [Suspect]
     Active Substance: OXYCODONE HYDROCHLORIDE
     Indication: Pain management
     Dosage: HIGH DOSAGE
     Route: 048
  2. OXYCONTIN [Suspect]
     Active Substance: OXYCODONE HYDROCHLORIDE
     Dosage: 16 TABLET, DAILY
     Route: 048
  3. BOTOX [Suspect]
     Active Substance: ONABOTULINUMTOXINA
     Indication: Pain management
     Dosage: UNK
     Route: 065

REACTIONS (15)
  - Seizure [Unknown]
  - Overdose [Unknown]
  - Drug dependence [Unknown]
  - Pain [Unknown]
  - Contusion [Unknown]
  - Impaired quality of life [Unknown]
  - Wound [Unknown]
  - Decreased interest [Unknown]
  - Disturbance in attention [Unknown]
  - Poor quality sleep [Unknown]
  - Memory impairment [Unknown]
  - Emotional distress [Unknown]
  - Tremor [Unknown]
  - Malaise [Unknown]
  - Vomiting [Unknown]
